FAERS Safety Report 19442248 (Version 1)
Quarter: 2021Q2

REPORT INFORMATION
  Report Type: Report from Study
  Country: US (occurrence: US)
  Receive Date: 20210621
  Receipt Date: 20210621
  Transmission Date: 20210717
  Serious: No
  Sender: FDA-Public Use
  Company Number: NVSC2021US132583

PATIENT
  Age: 34 Year
  Sex: Male

DRUGS (2)
  1. KESIMPTA [Suspect]
     Active Substance: OFATUMUMAB
     Dosage: 20 MG (BENEATH THESKIN, USUALLY VIA A INJECTION)
     Route: 058
     Dates: start: 20210606
  2. KESIMPTA [Suspect]
     Active Substance: OFATUMUMAB
     Indication: MULTIPLE SCLEROSIS
     Dosage: 20 MG, QW
     Route: 058

REACTIONS (8)
  - Chills [Unknown]
  - Pyrexia [Unknown]
  - Mental disorder [Recovering/Resolving]
  - Headache [Unknown]
  - Pain [Unknown]
  - Influenza like illness [Recovering/Resolving]
  - Feeling abnormal [Recovering/Resolving]
  - Fatigue [Recovering/Resolving]

NARRATIVE: CASE EVENT DATE: 20210606
